FAERS Safety Report 6106704-7 (Version None)
Quarter: 2009Q1

REPORT INFORMATION
  Report Type: 
  Country: None (occurrence: None)
  Receive Date: 20090305
  Receipt Date: 20090223
  Transmission Date: 20090719
  Serious: Yes (Hospitalization)
  Sender: FDA-Public Use
  Company Number: 09-000278

PATIENT
  Age: 54 Year
  Sex: Female
  Weight: 67.1 kg

DRUGS (7)
  1. FEMHRT [Suspect]
     Indication: MENOPAUSAL SYMPTOMS
     Dosage: 1MG/5MCG, QD, ORAL
     Route: 048
     Dates: start: 20060101
  2. METFORMIN HCL [Concomitant]
  3. SINGULAIR [Concomitant]
  4. VERAPAMIL [Concomitant]
  5. VYTORIN [Concomitant]
  6. NEXIUM [Concomitant]
  7. ZOLOFT [Concomitant]

REACTIONS (3)
  - INTESTINAL RESECTION [None]
  - PAIN IN EXTREMITY [None]
  - VENOUS THROMBOSIS LIMB [None]
